FAERS Safety Report 6149596-2 (Version None)
Quarter: 2009Q2

REPORT INFORMATION
  Report Type: 
  Country: None (occurrence: None)
  Receive Date: 20090409
  Receipt Date: 20090327
  Transmission Date: 20091009
  Serious: Yes (Other)
  Sender: FDA-Public Use
  Company Number: US-ROCHE-621465

PATIENT
  Sex: Male

DRUGS (5)
  1. CELLCEPT [Suspect]
     Route: 065
     Dates: start: 19990101
  2. LOVASTATIN [Concomitant]
  3. METOPROLOL [Concomitant]
  4. COUMADIN [Concomitant]
  5. PROGRAF [Concomitant]

REACTIONS (3)
  - ACTINIC KERATOSIS [None]
  - BONE INFARCTION [None]
  - SKIN CANCER [None]
